FAERS Safety Report 5020912-8 (Version None)
Quarter: 2006Q2

REPORT INFORMATION
  Report Type: 
  Country: None (occurrence: None)
  Receive Date: 20060602
  Receipt Date: 20060521
  Transmission Date: 20061013
  Serious: Yes (Other)
  Sender: FDA-Public Use
  Company Number: 2006S1004668

PATIENT
  Age: 52 Year
  Sex: Female

DRUGS (2)
  1. FENTANYL TRANSDERMAL SYSTEM [Suspect]
     Indication: BACK PAIN
     Dosage: 100 UG/HR; Q3D; TRANS
     Route: 062
     Dates: start: 20060511
  2. DIPHENHYDRAMINE/PARACETAMOL [Concomitant]

REACTIONS (8)
  - CONDITION AGGRAVATED [None]
  - CONSTIPATION [None]
  - DRUG ABUSER [None]
  - FAECALOMA [None]
  - FALL [None]
  - INADEQUATE ANALGESIA [None]
  - PAIN [None]
  - PHARMACEUTICAL PRODUCT COMPLAINT [None]
